FAERS Safety Report 4552559-1 (Version None)
Quarter: 2005Q1

REPORT INFORMATION
  Report Type: 
  Country: None (occurrence: None)
  Receive Date: 20050114
  Receipt Date: 20040901
  Transmission Date: 20050727
  Serious: No
  Sender: FDA-Public Use
  Company Number: US-GLAXOSMITHKLINE-A0524221A

PATIENT
  Sex: Female

DRUGS (8)
  1. IMITREX [Suspect]
     Indication: MIGRAINE
     Dosage: 6MG AS REQUIRED
     Route: 058
     Dates: start: 20040101
  2. CHEMOTHERAPY [Concomitant]
  3. PREVACID [Concomitant]
  4. KLONOPIN [Concomitant]
  5. ZOFRAN [Concomitant]
  6. ZESTRIL [Concomitant]
  7. VICODIN [Concomitant]
  8. BENADRYL [Concomitant]

REACTIONS (1)
  - INJECTION SITE IRRITATION [None]
